FAERS Safety Report 7589268-0 (Version None)
Quarter: 2011Q3

REPORT INFORMATION
  Report Type: 
  Country: None (occurrence: None)
  Receive Date: 20110705
  Receipt Date: 20110621
  Transmission Date: 20111222
  Serious: Yes (Death)
  Sender: FDA-Public Use
  Company Number: US-SANOFI-AVENTIS-2011SA041637

PATIENT
  Age: 51 Year
  Sex: Male

DRUGS (6)
  1. QUETIAPINE FUMARATE [Suspect]
     Dosage: UNSPECIFIED CHRONIC EXPOSURE, CONTINUOUS OR REPEATED EXPOSURE OCCURING OVER GREATER THAN 8 HOURS
     Route: 048
     Dates: start: 20080101, end: 20080101
  2. AMIODARONE HYDROCHLORIDE [Suspect]
     Dosage: UNSPECIFIED CHRONIC EXPOSURE, CONTINUOUS OR REPEATED EXPOSURE OCCURING OVER GREATER THAN 8 HOURS
     Route: 048
     Dates: start: 20080101, end: 20080101
  3. TRAZODONE HCL [Suspect]
     Dosage: UNSPECIFIED CHRONIC EXPOSURE, CONTINUOUS OR REPEATED EXPOSURE OCCURING OVER GREATER THAN 8 HOURS
     Route: 048
     Dates: start: 20080101, end: 20080101
  4. OXYCODONE HCL [Suspect]
     Dosage: UNSPECIFIED CHRONIC EXPOSURE, CONTINUOUS OR REPEATED EXPOSURE OCCURING OVER GREATER THAN 8 HOURS
     Route: 048
     Dates: start: 20080101, end: 20080101
  5. ZOLPIDEM TARTRATE [Suspect]
     Dosage: UNSPECIFIED CHRONIC EXPOSURE, CONTINUOUS OR REPEATED EXPOSURE OCCURING OVER GREATER THAN 8 HOURS
     Route: 048
     Dates: start: 20080101, end: 20080101
  6. OXYCET [Suspect]
     Dosage: UNSPECIFIED CHRONIC EXPOSURE, CONTINUOUS OR REPEATED EXPOSURE OCCURING OVER GREATER THAN 8 HOURS
     Route: 048
     Dates: start: 20080101, end: 20080101

REACTIONS (1)
  - COMPLETED SUICIDE [None]
